FAERS Safety Report 4383956-5 (Version None)
Quarter: 2004Q2

REPORT INFORMATION
  Report Type: 
  Country: None (occurrence: None)
  Receive Date: 20040624
  Receipt Date: 20040520
  Transmission Date: 20050107
  Serious: Yes (Other)
  Sender: FDA-Public Use
  Company Number: PHEH2004US05694

PATIENT
  Age: 75 Year
  Sex: Female
  Weight: 54 kg

DRUGS (7)
  1. ZOMETA [Suspect]
     Indication: BREAST CANCER METASTATIC
     Dosage: UNK, QMO
     Route: 042
     Dates: start: 20010512
  2. FEMARA [Concomitant]
     Indication: BREAST CANCER
     Dosage: 2.5 MG, QD
     Dates: start: 20010905, end: 20020605
  3. FASLODEX [Concomitant]
     Indication: BREAST CANCER METASTATIC
     Dosage: UNK, QMO
     Dates: start: 20020605
  4. ASPIRIN [Concomitant]
     Indication: PROPHYLAXIS
     Dosage: 81 MG, QD
     Dates: start: 20020305
  5. LOTENSIN HCT [Concomitant]
     Indication: HYPERTENSION
     Dosage: UNK, QD
     Dates: start: 20020212
  6. CENTRUM [Concomitant]
     Dosage: UNK, QD
  7. CALTRATE [Concomitant]
     Indication: OSTEOPOROSIS
     Dosage: UNK, QD
     Dates: start: 20030113

REACTIONS (6)
  - ACTINOMYCOSIS [None]
  - IMPAIRED HEALING [None]
  - ORAL SURGERY [None]
  - OSTEOMYELITIS [None]
  - TOOTH ABSCESS [None]
  - TOOTH EXTRACTION [None]
